FAERS Safety Report 5069928-6 (Version None)
Quarter: 2006Q3

REPORT INFORMATION
  Report Type: 
  Country: None (occurrence: None)
  Receive Date: 20060731
  Receipt Date: 20060714
  Transmission Date: 20061208
  Serious: Yes (Death, Hospitalization)
  Sender: FDA-Public Use
  Company Number: A-CH2006-12544

PATIENT
  Age: 68 Year
  Sex: Female
  Weight: 77.2 kg

DRUGS (10)
  1. TRACLEER [Suspect]
     Indication: PULMONARY HYPERTENSION
     Dosage: 125 MG, BID, ORAL   : 62.5 MG, BID, ORAL
     Route: 048
     Dates: start: 20040123, end: 20040218
  2. TRACLEER [Suspect]
     Indication: PULMONARY HYPERTENSION
     Dosage: 125 MG, BID, ORAL   : 62.5 MG, BID, ORAL
     Route: 048
     Dates: start: 20040219, end: 20060601
  3. AMLODIPINE [Concomitant]
  4. OMEPRAZOLE [Concomitant]
  5. LANOXIN [Concomitant]
  6. EMCONCOR (BISOPROLOL) [Concomitant]
  7. MARCUMAR [Concomitant]
  8. ALPRAZOLAM [Concomitant]
  9. GLUCOPHAGE [Concomitant]
  10. EFFEXOR [Concomitant]

REACTIONS (4)
  - ACUTE ABDOMEN [None]
  - ACUTE RESPIRATORY DISTRESS SYNDROME [None]
  - ASPARTATE AMINOTRANSFERASE INCREASED [None]
  - RETROPERITONEAL HAEMORRHAGE [None]
